FAERS Safety Report 5748466-9 (Version None)
Quarter: 2008Q2

REPORT INFORMATION
  Report Type: 
  Country: None (occurrence: None)
  Receive Date: 20080521
  Receipt Date: 20080515
  Transmission Date: 20081010
  Serious: Yes (Hospitalization)
  Sender: FDA-Public Use
  Company Number: 2008SP001525

PATIENT
  Age: 51 Year
  Sex: Male
  Weight: 104.3273 kg

DRUGS (5)
  1. PEG-INTRON [Suspect]
     Indication: HEPATITIS C
     Dosage: 48 MCG QW SC
     Route: 058
     Dates: start: 20060203, end: 20071229
  2. ENTERIC ASPIRIN [Concomitant]
  3. TOPROL-XL [Concomitant]
  4. BENICAR [Concomitant]
  5. ZETIA [Concomitant]

REACTIONS (3)
  - HYPERGLYCAEMIC HYPEROSMOLAR NONKETOTIC SYNDROME [None]
  - INFLUENZA LIKE ILLNESS [None]
  - MALAISE [None]
